FAERS Safety Report 8832088 (Version 2)
Quarter: 2014Q2

REPORT INFORMATION
  Report Type: Spontaneous
  Country: US (occurrence: US)
  Receive Date: 20121009
  Receipt Date: 20131024
  Transmission Date: 20141212
  Serious: No
  Sender: FDA-Public Use
  Company Number: US-PFIZER INC-2012245605

PATIENT
  Age: 62 Year
  Sex: Female
  Weight: 90.7 kg

DRUGS (6)
  1. SOLU-MEDROL [Suspect]
     Indication: MULTIPLE SCLEROSIS
     Dosage: UNK, 1X/DAY
     Route: 042
     Dates: start: 2008, end: 2008
  2. INTERFERON BETA-1A [Suspect]
     Indication: MULTIPLE SCLEROSIS
     Dosage: UNK
  3. COPAXONE [Suspect]
     Indication: MULTIPLE SCLEROSIS
     Dosage: UNK
  4. OXYBUTYNIN [Concomitant]
     Indication: URINARY TRACT DISORDER
     Dosage: UNK
  5. RANITIDINE [Concomitant]
     Dosage: UNK, AS NEEDED
  6. POTASSIUM [Concomitant]
     Dosage: UNK

REACTIONS (4)
  - Thyroid disorder [Unknown]
  - Vision blurred [Recovered/Resolved]
  - Flushing [Recovered/Resolved]
  - Hypoaesthesia [Recovered/Resolved]
